FAERS Safety Report 15928901 (Version 1)
Quarter: 2019Q1

REPORT INFORMATION
  Report Type: Spontaneous
  Country: AR (occurrence: AR)
  Receive Date: 20190206
  Receipt Date: 20190206
  Transmission Date: 20190417
  Serious: Yes (Other)
  Sender: FDA-Public Use
  Company Number: AR-PFIZER INC-2018528438

PATIENT
  Age: 67 Year
  Sex: Female

DRUGS (1)
  1. IBRANCE [Suspect]
     Active Substance: PALBOCICLIB
     Indication: BREAST CANCER METASTATIC
     Dosage: 125 MG, CYCLIC (DAILY 3X1 SCHEME)
     Dates: start: 20171208

REACTIONS (6)
  - Weight decreased [Unknown]
  - Decreased immune responsiveness [Unknown]
  - White blood cell count decreased [Unknown]
  - Dehydration [Unknown]
  - Liver disorder [Unknown]
  - Dry skin [Unknown]

NARRATIVE: CASE EVENT DATE: 2018
